FAERS Safety Report 11652536 (Version 1)
Quarter: 2015Q4

REPORT INFORMATION
  Report Type: Spontaneous
  Country: CN (occurrence: CN)
  Receive Date: 20151022
  Receipt Date: 20151022
  Transmission Date: 20160304
  Serious: Yes (Other)
  Sender: FDA-Public Use
  Company Number: CN-PFIZER INC-2015357075

PATIENT
  Age: 85 Year
  Sex: Male

DRUGS (3)
  1. SOLU-MEDROL [Suspect]
     Active Substance: METHYLPREDNISOLONE SODIUM SUCCINATE
     Indication: ANTIINFLAMMATORY THERAPY
     Dosage: 40 MG, 1X/DAY
     Route: 041
     Dates: start: 20150501, end: 20150505
  2. SULPERAZON [Suspect]
     Active Substance: CEFOPERAZONE SODIUM\SULBACTAM SODIUM
     Indication: ANTI-INFECTIVE THERAPY
     Dosage: 3 G, 3X/DAY
     Route: 041
     Dates: start: 20150501, end: 20150505
  3. SOLU-MEDROL [Suspect]
     Active Substance: METHYLPREDNISOLONE SODIUM SUCCINATE
     Indication: ASTHMA

REACTIONS (4)
  - Insomnia [Recovering/Resolving]
  - Language disorder [Recovering/Resolving]
  - Mental disorder [Recovering/Resolving]
  - Affect lability [Recovering/Resolving]

NARRATIVE: CASE EVENT DATE: 20150505
